FAERS Safety Report 5217806-1 (Version None)
Quarter: 2007Q1

REPORT INFORMATION
  Report Type: 
  Country: None (occurrence: None)
  Receive Date: 20061130
  Receipt Date: 20060815
  Transmission Date: 20070707
  Serious: Yes (Other)
  Sender: FDA-Public Use
  Company Number: US200607002858

PATIENT
  Age: 81 Year
  Sex: 0

DRUGS (2)
  1. ZYPREXA [Suspect]
     Indication: DEPRESSION
     Dosage: 2.5 MG, DAILY (1/D), ORAL
     Route: 048
     Dates: start: 20030501, end: 20050901
  2. EFFEXOR [Concomitant]

REACTIONS (1)
  - DIABETES MELLITUS [None]
